FAERS Safety Report 6226763-0 (Version None)
Quarter: 2009Q2

REPORT INFORMATION
  Report Type: 
  Country: None (occurrence: None)
  Receive Date: 20090612
  Receipt Date: 20090520
  Transmission Date: 20091009
  Serious: No
  Sender: FDA-Public Use
  Company Number: US-ABBOTT-09P-163-0574713-00

PATIENT
  Sex: Female

DRUGS (1)
  1. HUMIRA [Suspect]
     Indication: RHEUMATOID ARTHRITIS
     Dates: start: 20090510

REACTIONS (11)
  - ARTHRALGIA [None]
  - CONDITION AGGRAVATED [None]
  - EYE INFECTION FUNGAL [None]
  - FATIGUE [None]
  - FEELING HOT [None]
  - MYALGIA [None]
  - NAUSEA [None]
  - ORAL CANDIDIASIS [None]
  - PYREXIA [None]
  - RASH [None]
  - URTICARIA [None]
